FAERS Safety Report 6607035-9 (Version None)
Quarter: 2010Q1

REPORT INFORMATION
  Report Type: 
  Country: None (occurrence: None)
  Receive Date: 20100227
  Receipt Date: 20100223
  Transmission Date: 20100710
  Serious: Yes (Hospitalization)
  Sender: FDA-Public Use
  Company Number: BE-SANOFI PASTEUR-2010-01226

PATIENT
  Sex: Male

DRUGS (1)
  1. BCG  THERAPEUTICS [Suspect]
     Indication: BLADDER CANCER STAGE 0, WITH CANCER IN SITU
     Dosage: NOT REPORTED
     Route: 043

REACTIONS (6)
  - BOVINE TUBERCULOSIS [None]
  - DYSURIA [None]
  - HAEMATURIA [None]
  - INFLUENZA LIKE ILLNESS [None]
  - PERINEAL PAIN [None]
  - PROSTATIC ABSCESS [None]
